FAERS Safety Report 11342913 (Version 1)
Quarter: 2015Q3

REPORT INFORMATION
  Report Type: Spontaneous
  Country: US (occurrence: US)
  Receive Date: 20150805
  Receipt Date: 20150805
  Transmission Date: 20151125
  Serious: No
  Sender: FDA-Public Use
  Company Number: US-AMGEN-USASP2015072099

PATIENT
  Age: 7 Year
  Sex: Male

DRUGS (1)
  1. NPLATE [Suspect]
     Active Substance: ROMIPLOSTIM
     Indication: IMMUNE THROMBOCYTOPENIC PURPURA
     Dosage: 220 MUG (10 MCG/KG DOSE), QWK
     Route: 065
     Dates: start: 20141126

REACTIONS (3)
  - Platelet count decreased [Unknown]
  - Therapeutic response decreased [Unknown]
  - Weight increased [Unknown]
